FAERS Safety Report 13166478 (Version 1)
Quarter: 2017Q1

REPORT INFORMATION
  Report Type: Spontaneous
  Country: US (occurrence: US)
  Receive Date: 20170126
  Receipt Date: 20170126
  Transmission Date: 20170428
  Serious: Yes (Disabling)
  Sender: FDA-Public Use
  Company Number: None

PATIENT
  Age: 23 Year
  Sex: Female
  Weight: 50.4 kg

DRUGS (3)
  1. B VITAMINS [Concomitant]
     Active Substance: CYANOCOBALAMIN\DEXPANTHENOL\NIACINAMIDE\PYRIDOXINE HYDROCHLORIDE\RIBOFLAVIN 5^-PHOSPHATE SODIUM\THIAMINE HYDROCHLORIDE\VITAMIN B COMPLEX
  2. LATUDA [Suspect]
     Active Substance: LURASIDONE HYDROCHLORIDE
     Indication: SCHIZOPHRENIA
     Dosage: ?          QUANTITY:1 TABLET(S);?
     Route: 048
     Dates: start: 20160706, end: 20160710
  3. MULTI VITAMINS [Concomitant]
     Active Substance: VITAMINS

REACTIONS (8)
  - Muscle rigidity [None]
  - Hunger [None]
  - Muscle spasms [None]
  - Muscle twitching [None]
  - Musculoskeletal stiffness [None]
  - Polymenorrhoea [None]
  - Fall [None]
  - Genital hypoaesthesia [None]

NARRATIVE: CASE EVENT DATE: 20160706
